FAERS Safety Report 10079630 (Version 1)
Quarter: 2014Q2

REPORT INFORMATION
  Report Type: Report from Study
  Country: US (occurrence: US)
  Receive Date: 20140415
  Receipt Date: 20140415
  Transmission Date: 20141212
  Serious: Yes (Other)
  Sender: FDA-Public Use
  Company Number: US-MERCK-1404USA008001

PATIENT
  Sex: 0

DRUGS (2)
  1. TEMODAR [Suspect]
     Indication: NEOPLASM
     Dosage: 125 MG/M2, QD, ON DAYS 1-7 AND 15-21
     Route: 048
  2. PEGINTRON [Suspect]
     Indication: NEOPLASM
     Dosage: ON DAYS 1, 8, 15 AND 22
     Route: 058

REACTIONS (1)
  - Neutropenia [Unknown]
